FAERS Safety Report 4981624-X (Version None)
Quarter: 2006Q2

REPORT INFORMATION
  Report Type: 
  Country: None (occurrence: None)
  Receive Date: 20060425
  Receipt Date: 20060418
  Transmission Date: 20061013
  Serious: Yes (Hospitalization, Other)
  Sender: FDA-Public Use
  Company Number: US-ABBOTT-06P-163-0330934-00

PATIENT
  Sex: Female
  Weight: 76.272 kg

DRUGS (6)
  1. HUMIRA [Suspect]
     Indication: RHEUMATOID ARTHRITIS
     Route: 058
     Dates: start: 20050101, end: 20051101
  2. HUMIRA [Suspect]
     Route: 058
     Dates: start: 20060401
  3. PREDNISONE [Concomitant]
     Indication: RHEUMATOID ARTHRITIS
     Route: 048
  4. HYDROXYCHLOROQUINE PHOSPHATE [Concomitant]
     Indication: RHEUMATOID ARTHRITIS
     Route: 048
  5. CELECOXIB [Concomitant]
     Indication: PAIN
     Route: 048
  6. ESOMEPRAZOLE [Concomitant]
     Indication: PROPHYLAXIS AGAINST GASTROINTESTINAL ULCER
     Route: 048

REACTIONS (3)
  - GOITRE [None]
  - RESPIRATORY TRACT INFECTION [None]
  - THYROID DISORDER [None]
